FAERS Safety Report 15043182 (Version 1)
Quarter: 2018Q2

REPORT INFORMATION
  Report Type: Spontaneous
  Country: GB (occurrence: GB)
  Receive Date: 20180621
  Receipt Date: 20180621
  Transmission Date: 20180711
  Serious: Yes (Death)
  Sender: FDA-Public Use
  Company Number: GB-ABBVIE-18S-167-2394851-00

PATIENT
  Age: 53 Year
  Sex: Female

DRUGS (1)
  1. LEVOBUPIVACAINE [Suspect]
     Active Substance: LEVOBUPIVACAINE
     Indication: PRODUCT USED FOR UNKNOWN INDICATION
     Route: 050

REACTIONS (3)
  - Respiratory arrest [Fatal]
  - Cardiac arrest [Fatal]
  - Multiple organ dysfunction syndrome [Fatal]

NARRATIVE: CASE EVENT DATE: 20170923
